FAERS Safety Report 12583930 (Version 8)
Quarter: 2016Q4

REPORT INFORMATION
  Report Type: Report from Study
  Country: None (occurrence: BE)
  Receive Date: 20160722
  Receipt Date: 20161102
  Transmission Date: 20170207
  Serious: Yes (Hospitalization)
  Sender: FDA-Public Use
  Company Number: BE-ABBVIE-16P-013-1643218-00

PATIENT
  Sex: Male

DRUGS (11)
  1. LEPONEX [Concomitant]
     Active Substance: CLOZAPINE
     Indication: PRODUCT USED FOR UNKNOWN INDICATION
  2. DUODOPA [Suspect]
     Active Substance: CARBIDOPA\LEVODOPA
     Dosage: AM= 7 ML; CD= 3.3 ML/H DURING 16 HRS; ED= 2 ML
     Route: 050
     Dates: start: 20160824, end: 20160920
  3. DUODOPA [Suspect]
     Active Substance: CARBIDOPA\LEVODOPA
     Dosage: DOSES CONTINUOUSLY MONITORED AND ADAPTED
     Route: 050
     Dates: start: 20160202, end: 20160404
  4. DUODOPA [Suspect]
     Active Substance: CARBIDOPA\LEVODOPA
     Dosage: AM= 7 ML; CD= 3.2 ML/H DURING 16 HRS; ED=1.7 ML
     Route: 050
     Dates: start: 20160920, end: 20161024
  5. DUODOPA [Suspect]
     Active Substance: CARBIDOPA\LEVODOPA
     Dosage: AM=7.5ML, CD=3.8ML/HR DURING 16HRS, ED=2ML
     Route: 050
     Dates: start: 20160708, end: 20160713
  6. DUODOPA [Suspect]
     Active Substance: CARBIDOPA\LEVODOPA
     Indication: PARKINSON^S DISEASE
     Dosage: AM= 12 ML; CD= 5.3 ML/H DURING 16 HRS; ED= 2 ML
     Route: 050
     Dates: start: 20160118, end: 20160202
  7. DUODOPA [Suspect]
     Active Substance: CARBIDOPA\LEVODOPA
     Dosage: AM= 7.5 ML; CD= 3.8 ML/H DURING 16 HRS; ED= 2 ML
     Route: 050
     Dates: start: 20160404, end: 20160525
  8. DUODOPA [Suspect]
     Active Substance: CARBIDOPA\LEVODOPA
     Dosage: AM= 7.5 ML; CD= 3.6 ML/H DURING 16 HRS; ED= 2 ML
     Route: 050
     Dates: start: 20160525, end: 20160708
  9. DUODOPA [Suspect]
     Active Substance: CARBIDOPA\LEVODOPA
     Dosage: AM= 6 ML; CD= 3.4 ML/H DURING 16 HRS; ED= 2 ML
     Route: 050
     Dates: start: 20160713, end: 20160726
  10. DUODOPA [Suspect]
     Active Substance: CARBIDOPA\LEVODOPA
     Dosage: AM= 7ML; CD= 3 ML/H DURING 16 HRS; ED= 1.7 ML
     Route: 050
     Dates: start: 20161024
  11. DUODOPA [Suspect]
     Active Substance: CARBIDOPA\LEVODOPA
     Dosage: AM=7 ML; CD=3.5 ML/H DURING 16 HRS; ED=2 ML
     Route: 050
     Dates: start: 20160726, end: 20160824

REACTIONS (14)
  - Cognitive disorder [Unknown]
  - General physical health deterioration [Unknown]
  - General physical health deterioration [Not Recovered/Not Resolved]
  - Hallucination [Unknown]
  - Obsessive-compulsive disorder [Unknown]
  - Paranoia [Unknown]
  - Abnormal behaviour [Unknown]
  - Inadequate diet [Unknown]
  - Aggression [Unknown]
  - On and off phenomenon [Unknown]
  - Weight decreased [Unknown]
  - Speech disorder [Unknown]
  - Disorientation [Unknown]
  - Mental disorder [Not Recovered/Not Resolved]

NARRATIVE: CASE EVENT DATE: 2016
